FAERS Safety Report 19227858 (Version 1)
Quarter: 2021Q2

REPORT INFORMATION
  Report Type: Spontaneous
  Country: US (occurrence: US)
  Receive Date: 20210506
  Receipt Date: 20210506
  Transmission Date: 20210717
  Serious: No
  Sender: FDA-Public Use
  Company Number: US-ROCHE-2716823

PATIENT
  Sex: Male

DRUGS (3)
  1. ESBRIET [Suspect]
     Active Substance: PIRFENIDONE
     Indication: IDIOPATHIC PULMONARY FIBROSIS
     Dosage: TAKE 3 CAPSULE BY MOUTH 3 TIMES A DAY WITH FOOD
     Route: 048
  2. FLOMAX CAPSULE [Concomitant]
  3. METFORMIN HCL [Concomitant]
     Active Substance: METFORMIN HYDROCHLORIDE

REACTIONS (5)
  - Anxiety [Unknown]
  - Dyspnoea [Unknown]
  - Cough [Unknown]
  - Sputum increased [Unknown]
  - Gastrooesophageal reflux disease [Unknown]
